FAERS Safety Report 19295469 (Version 1)
Quarter: 2021Q2

REPORT INFORMATION
  Report Type: Spontaneous
  Country: RS (occurrence: RS)
  Receive Date: 20210524
  Receipt Date: 20210524
  Transmission Date: 20210717
  Serious: Yes (Other)
  Sender: FDA-Public Use
  Company Number: RS-SA-2021SA170610

PATIENT
  Age: 18 Year
  Sex: Female

DRUGS (2)
  1. ACTRAPID [Concomitant]
     Active Substance: INSULIN HUMAN
     Dosage: UNK
     Route: 065
  2. LANTUS SOLOSTAR [Suspect]
     Active Substance: INSULIN GLARGINE
     Dosage: UNK
     Route: 065

REACTIONS (2)
  - Diabetic ketoacidosis [Unknown]
  - Treatment noncompliance [Unknown]
